FAERS Safety Report 10524272 (Version 1)
Quarter: 2014Q4

REPORT INFORMATION
  Report Type: Spontaneous
  Country: US (occurrence: None)
  Receive Date: 20141015
  Receipt Date: 20141015
  Transmission Date: 20150528
  Serious: Yes (Other)
  Sender: FDA-Public Use
  Company Number: HA14-368-AE

PATIENT
  Age: 37 Year
  Sex: Male

DRUGS (1)
  1. IBUPROFEN. [Suspect]
     Active Substance: IBUPROFEN
     Indication: PAIN MANAGEMENT
     Dosage: TABLETS
     Route: 048

REACTIONS (5)
  - Loss of consciousness [None]
  - Overdose [None]
  - Dependence [None]
  - Memory impairment [None]
  - Urinary incontinence [None]
